FAERS Safety Report 6334590-9 (Version None)
Quarter: 2009Q3

REPORT INFORMATION
  Report Type: 
  Country: None (occurrence: None)
  Receive Date: 20090831
  Receipt Date: 20090826
  Transmission Date: 20100115
  Serious: Yes (Death, Other)
  Sender: FDA-Public Use
  Company Number: PHHY2009JP36063

PATIENT
  Age: 12 Year
  Sex: Female

DRUGS (2)
  1. CYCLOSPORINE [Suspect]
     Indication: GRAFT VERSUS HOST DISEASE
  2. STEROIDS NOS [Concomitant]
     Indication: GRAFT VERSUS HOST DISEASE

REACTIONS (8)
  - ANAEMIA [None]
  - BRONCHOPULMONARY ASPERGILLOSIS [None]
  - CHRONIC GRAFT VERSUS HOST DISEASE [None]
  - COLON INJURY [None]
  - DUODENAL ULCER HAEMORRHAGE [None]
  - MELAENA [None]
  - MUCOSAL HAEMORRHAGE [None]
  - RESPIRATORY FAILURE [None]
